FAERS Safety Report 9916976 (Version 1)
Quarter: 2014Q1

REPORT INFORMATION
  Report Type: Spontaneous
  Country: IT (occurrence: IT)
  Receive Date: 20140221
  Receipt Date: 20140221
  Transmission Date: 20141002
  Serious: Yes (Hospitalization)
  Sender: FDA-Public Use
  Company Number: IT-BAYER-2014-027946

PATIENT
  Age: 65 Year
  Sex: Male

DRUGS (2)
  1. CARDIOASPIRIN [Suspect]
     Indication: PROPHYLAXIS
     Dosage: DAILY DOSE 1 DF
     Route: 048
     Dates: start: 20100101, end: 20140102
  2. ENALAPRIL [Concomitant]
     Dosage: DAILY DOSE 10 MG
     Route: 048

REACTIONS (2)
  - Aphasia [Recovering/Resolving]
  - Cerebral haematoma [Recovering/Resolving]
